FAERS Safety Report 13985394 (Version 1)
Quarter: 2017Q3

REPORT INFORMATION
  Report Type: Spontaneous
  Country: US (occurrence: None)
  Receive Date: 20170918
  Receipt Date: 20170918
  Transmission Date: 20171128
  Serious: No
  Sender: FDA-Public Use
  Company Number: None

PATIENT
  Age: 28 Year
  Sex: Female
  Weight: 55.34 kg

DRUGS (2)
  1. ALBUTEROL HFA [Concomitant]
     Active Substance: ALBUTEROL SULFATE
  2. PARAGARD T 380A [Suspect]
     Active Substance: COPPER
     Dates: start: 20170831, end: 20170918

REACTIONS (2)
  - Pelvic pain [None]
  - Complication of device insertion [None]

NARRATIVE: CASE EVENT DATE: 20170917
